FAERS Safety Report 4950788-6 (Version None)
Quarter: 2006Q1

REPORT INFORMATION
  Report Type: 
  Country: None (occurrence: None)
  Receive Date: 20060321
  Receipt Date: 20060321
  Transmission Date: 20060701
  Serious: Yes (Hospitalization, Other)
  Sender: FDA-Public Use
  Company Number: None

PATIENT
  Sex: Female
  Weight: 80 kg

DRUGS (2)
  1. CARBOPLATIN [Suspect]
     Indication: PERITONEAL CARCINOMA
     Dosage: 810 MG
     Dates: start: 20060228
  2. TAXOL [Suspect]
     Dosage: 318 MG
     Dates: start: 20060228

REACTIONS (9)
  - FEELING ABNORMAL [None]
  - FLUID RETENTION [None]
  - NAUSEA [None]
  - NEUTROPENIA [None]
  - OPEN WOUND [None]
  - POST PROCEDURAL COMPLICATION [None]
  - RETCHING [None]
  - VOMITING [None]
  - WOUND DEHISCENCE [None]
